FAERS Safety Report 7083469-6 (Version None)
Quarter: 2010Q4

REPORT INFORMATION
  Report Type: 
  Country: None (occurrence: None)
  Receive Date: 20101104
  Receipt Date: 20101027
  Transmission Date: 20110411
  Serious: Yes (Other)
  Sender: FDA-Public Use
  Company Number: B0682716A

PATIENT
  Sex: Female

DRUGS (1)
  1. BECONASE ALLERGY SPRAY [Suspect]
     Indication: SEASONAL ALLERGY
     Route: 045
     Dates: start: 20040901

REACTIONS (2)
  - AGEUSIA [None]
  - ANOSMIA [None]
